FAERS Safety Report 15953204 (Version 2)
Quarter: 2019Q1

REPORT INFORMATION
  Report Type: Spontaneous
  Country: DE (occurrence: DE)
  Receive Date: 20190212
  Receipt Date: 20190227
  Transmission Date: 20190417
  Serious: Yes (Other)
  Sender: FDA-Public Use
  Company Number: PHHY2019DE029565

PATIENT
  Age: 87 Year
  Sex: Female

DRUGS (5)
  1. MARCUMAR [Concomitant]
     Active Substance: PHENPROCOUMON
     Indication: PRODUCT USED FOR UNKNOWN INDICATION
     Route: 065
  2. BISOPROLOL [Concomitant]
     Active Substance: BISOPROLOL
     Indication: PRODUCT USED FOR UNKNOWN INDICATION
     Route: 065
  3. BETOPTIMA (ALC) (BETAXOLOL HYDROCHLORIDE) [Suspect]
     Active Substance: BETAXOLOL HYDROCHLORIDE
     Indication: NORMAL TENSION GLAUCOMA
     Dosage: 1 GTT, QD
     Route: 047
     Dates: start: 2018
  4. TRUSOPT [Concomitant]
     Active Substance: DORZOLAMIDE HYDROCHLORIDE
     Indication: NORMAL TENSION GLAUCOMA
     Dosage: 1 GTT, QD
     Route: 065
  5. MONOPROST [Concomitant]
     Active Substance: LATANOPROST
     Indication: NORMAL TENSION GLAUCOMA
     Dosage: 1 GTT, QD
     Route: 065

REACTIONS (8)
  - Depressed level of consciousness [None]
  - Dysgeusia [None]
  - Dysgeusia [Unknown]
  - Blood pressure decreased [Unknown]
  - Depressed level of consciousness [Unknown]
  - Eye irritation [Unknown]
  - Eye irritation [None]
  - Dizziness [Unknown]
